FAERS Safety Report 6072261-7 (Version None)
Quarter: 2009Q1

REPORT INFORMATION
  Report Type: 
  Country: None (occurrence: None)
  Receive Date: 20090206
  Receipt Date: 20090206
  Transmission Date: 20090719
  Serious: Yes (Other)
  Sender: FDA-Public Use
  Company Number: None

PATIENT
  Sex: Female

DRUGS (1)
  1. ACTONEL [Suspect]
     Indication: OSTEOPOROSIS
     Dosage: 1 TAB WEEKLY PO
     Route: 048
     Dates: start: 19990101, end: 20090204

REACTIONS (3)
  - MASTICATION DISORDER [None]
  - PAIN IN JAW [None]
  - X-RAY ABNORMAL [None]
